FAERS Safety Report 13682235 (Version 1)
Quarter: 2017Q2

REPORT INFORMATION
  Report Type: Spontaneous
  Country: JP (occurrence: JP)
  Receive Date: 20170623
  Receipt Date: 20170623
  Transmission Date: 20170830
  Serious: Yes (Other)
  Sender: FDA-Public Use
  Company Number: JP-FRESENIUS KABI-FK201705342

PATIENT
  Age: 74 Year
  Sex: Male
  Weight: 61.8 kg

DRUGS (5)
  1. EDOXABAN [Suspect]
     Active Substance: EDOXABAN TOSYLATE
     Indication: DEEP VEIN THROMBOSIS
  2. OTERACIL [Interacting]
     Active Substance: OTERACIL
     Indication: GASTRIC CANCER STAGE IV
  3. TEGAFUR [Interacting]
     Active Substance: TEGAFUR
     Indication: GASTRIC CANCER STAGE IV
  4. OXALIPLATIN (MANUFACTURER UNKNOWN) [Suspect]
     Active Substance: OXALIPLATIN
     Indication: GASTRIC CANCER STAGE IV
     Route: 065
  5. GIMERACIL [Interacting]
     Active Substance: GIMERACIL
     Indication: GASTRIC CANCER STAGE IV

REACTIONS (4)
  - Medication error [Unknown]
  - Drug interaction [Unknown]
  - Off label use [Unknown]
  - Ischaemic stroke [Unknown]
